FAERS Safety Report 8199182-8 (Version None)
Quarter: 2012Q1

REPORT INFORMATION
  Report Type: 
  Country: None (occurrence: None)
  Receive Date: 20120309
  Receipt Date: 20120306
  Transmission Date: 20120608
  Serious: Yes (Other)
  Sender: FDA-Public Use
  Company Number: US-PFIZER INC-2012060665

PATIENT
  Sex: Female
  Weight: 68.027 kg

DRUGS (4)
  1. LYRICA [Suspect]
     Indication: FIBROMYALGIA
     Dosage: 100 MG, 2X/DAY
     Route: 048
     Dates: start: 20120101, end: 20120201
  2. LOPRESSOR [Concomitant]
     Indication: HYPERTENSION
     Dosage: 25 MG, 2X/DAY
  3. LYRICA [Suspect]
     Indication: NEUROPATHY PERIPHERAL
     Dosage: 100 MG, 2X/DAY
     Route: 048
     Dates: start: 20110101, end: 20111201
  4. LORTAB [Suspect]
     Indication: PAIN
     Dosage: UNK
     Dates: start: 20120304

REACTIONS (2)
  - DRUG INEFFECTIVE [None]
  - PAIN [None]
